FAERS Safety Report 16851442 (Version 2)
Quarter: 2019Q4

REPORT INFORMATION
  Report Type: Spontaneous
  Country: US (occurrence: US)
  Receive Date: 20190925
  Receipt Date: 20191002
  Transmission Date: 20200122
  Serious: No
  Sender: FDA-Public Use
  Company Number: US-PFIZER INC-2019410969

PATIENT
  Age: 66 Year

DRUGS (11)
  1. OXYCODONE [Suspect]
     Active Substance: OXYCODONE
     Dosage: UNK
  2. TYZINE [Suspect]
     Active Substance: TETRAHYDROZOLINE HYDROCHLORIDE
     Dosage: UNK
  3. ADVIL [Suspect]
     Active Substance: IBUPROFEN
     Dosage: UNK
  4. PANDERM [Suspect]
     Active Substance: FLUPREDNIDENE ACETATE\MICONAZOLE NITRATE
     Dosage: UNK
  5. MORPHINE SULFATE. [Suspect]
     Active Substance: MORPHINE SULFATE
     Dosage: UNK
  6. IBUPROFEN. [Suspect]
     Active Substance: IBUPROFEN
     Dosage: UNK
  7. ASPIRIN. [Suspect]
     Active Substance: ASPIRIN
     Dosage: UNK
  8. PEROXINORM [ORGOTEIN;SUCROSE] [Suspect]
     Active Substance: ORGOTEIN
     Dosage: UNK
  9. PENICILLAMINE [Suspect]
     Active Substance: PENICILLAMINE
     Dosage: UNK
  10. TYLOX [Suspect]
     Active Substance: ACETAMINOPHEN\OXYCODONE HYDROCHLORIDE
     Dosage: UNK
  11. PERCOCET [Suspect]
     Active Substance: ACETAMINOPHEN\OXYCODONE HYDROCHLORIDE
     Dosage: UNK

REACTIONS (1)
  - Drug hypersensitivity [Unknown]
